FAERS Safety Report 23454341 (Version 4)
Quarter: 2024Q2

REPORT INFORMATION
  Report Type: Spontaneous
  Country: CA (occurrence: CA)
  Receive Date: 20240130
  Receipt Date: 20240502
  Transmission Date: 20240716
  Serious: Yes (Other)
  Sender: FDA-Public Use
  Company Number: CA-CELLTRION INC.-2022CA002753

PATIENT

DRUGS (13)
  1. INFLECTRA [Suspect]
     Active Substance: INFLIXIMAB-DYYB
     Indication: Crohn^s disease
     Dosage: 10 MG/KG, EVERY 4 WEEKS (DOSE TO BE ROUNDED TO NEAREST 100)
     Route: 042
  2. INFLECTRA [Suspect]
     Active Substance: INFLIXIMAB-DYYB
     Dosage: 5 MG/KG, EVERY 4 WEEK, ROUND TO NEAREST HUNDRED
     Route: 042
     Dates: start: 20220325, end: 20230705
  3. INFLECTRA [Suspect]
     Active Substance: INFLIXIMAB-DYYB
     Dosage: 5 MG/KG, EVERY 4 WEEK, ROUND TO NEAREST HUNDRED
     Route: 042
     Dates: start: 20220429
  4. INFLECTRA [Suspect]
     Active Substance: INFLIXIMAB-DYYB
     Dosage: 5 MG/KG, EVERY 4 WEEK, ROUND TO NEAREST HUNDRED
     Route: 042
     Dates: start: 20220608
  5. INFLECTRA [Suspect]
     Active Substance: INFLIXIMAB-DYYB
     Dosage: 5 MG/KG, EVERY 4 WEEKS, ROUNDEST TO NEAREST HUNDRED
     Route: 042
     Dates: start: 20220705
  6. INFLECTRA [Suspect]
     Active Substance: INFLIXIMAB-DYYB
     Dosage: 5 MG/KG, EVERY 4 WEEKS, ROUNDEST TO NEAREST HUNDRED
     Route: 042
     Dates: start: 20220804, end: 20220804
  7. INFLECTRA [Suspect]
     Active Substance: INFLIXIMAB-DYYB
     Dosage: 5 MG/KG (332.5 MG), EVERY 4 WEEKS ROUNDEST TO NEAREST HUNDRED
     Route: 042
     Dates: start: 20221026
  8. INFLECTRA [Suspect]
     Active Substance: INFLIXIMAB-DYYB
     Dosage: 5 MG/KG (332.5 MG), EVERY 4 WEEKS ROUNDEST TO NEAREST HUNDRED
     Route: 042
     Dates: start: 20221122
  9. INFLECTRA [Suspect]
     Active Substance: INFLIXIMAB-DYYB
     Dosage: 7.5 MG/KG, EVERY 4 WEEKS
     Route: 042
     Dates: start: 20230802
  10. INFLECTRA [Suspect]
     Active Substance: INFLIXIMAB-DYYB
     Dosage: 5 MG/KG (500 MG), EVERY 4 WEEK, ROUND TO NEAREST HUNDRED
     Route: 042
     Dates: start: 20231129, end: 20231129
  11. INFLECTRA [Suspect]
     Active Substance: INFLIXIMAB-DYYB
     Dosage: 5 MG/KG (500 MG), EVERY 4 WEEK, ROUND TO NEAREST HUNDRED
     Route: 042
     Dates: start: 20240327
  12. INFLECTRA [Suspect]
     Active Substance: INFLIXIMAB-DYYB
     Dosage: 7.5 MG/KG (510MG), EVERY 4 WEEKS
     Route: 042
     Dates: start: 20240422
  13. CORTISONE [Concomitant]
     Active Substance: CORTISONE
     Dosage: 1 DF

REACTIONS (15)
  - Chondropathy [Recovering/Resolving]
  - Blood pressure increased [Recovering/Resolving]
  - Skin lesion [Recovering/Resolving]
  - Dry skin [Recovering/Resolving]
  - Erythema [Recovering/Resolving]
  - Pruritus [Not Recovered/Not Resolved]
  - Wound [Recovered/Resolved]
  - Wound complication [Unknown]
  - Blood pressure increased [Not Recovered/Not Resolved]
  - Blood pressure systolic increased [Not Recovered/Not Resolved]
  - Psoriasis [Unknown]
  - Off label use [Unknown]
  - Off label use [Unknown]
  - Off label use [Unknown]
  - Intentional product use issue [Unknown]

NARRATIVE: CASE EVENT DATE: 20220101
